FAERS Safety Report 11794927 (Version 1)
Quarter: 2015Q4

REPORT INFORMATION
  Report Type: Spontaneous
  Country: BR (occurrence: BR)
  Receive Date: 20151202
  Receipt Date: 20151202
  Transmission Date: 20160305
  Serious: Yes (Other)
  Sender: FDA-Public Use
  Company Number: BR-JNJFOC-20151126670

PATIENT
  Age: 34 Year
  Sex: Male

DRUGS (1)
  1. LEVAQUIN [Suspect]
     Active Substance: LEVOFLOXACIN
     Indication: PROSTATE INFECTION
     Route: 065

REACTIONS (10)
  - Asthenia [Unknown]
  - Coordination abnormal [Unknown]
  - Muscle spasms [Unknown]
  - Muscle twitching [Unknown]
  - Hypoaesthesia [Unknown]
  - Feeling of body temperature change [Unknown]
  - Arthralgia [Unknown]
  - Vision blurred [Unknown]
  - Fatigue [Unknown]
  - Palpitations [Unknown]
